FAERS Safety Report 5858929-3 (Version None)
Quarter: 2008Q3

REPORT INFORMATION
  Report Type: 
  Country: None (occurrence: None)
  Receive Date: 20080825
  Receipt Date: 20080812
  Transmission Date: 20090109
  Serious: Yes (Death, Hospitalization)
  Sender: FDA-Public Use
  Company Number: 06-NIP00005

PATIENT
  Age: 67 Year
  Sex: Male
  Weight: 97.6 kg

DRUGS (4)
  1. NIPENT [Suspect]
     Indication: CHRONIC LYMPHOCYTIC LEUKAEMIA
     Dosage: 4 MG/M2
     Dates: start: 20051228, end: 20060123
  2. RITUXIMAB [Suspect]
     Indication: CHRONIC LYMPHOCYTIC LEUKAEMIA
     Dosage: 375 MG/M2
     Dates: start: 20051228, end: 20060123
  3. CYCLOPHOSPHAMIDE [Suspect]
     Indication: CHRONIC LYMPHOCYTIC LEUKAEMIA
     Dosage: 600 MG/M2
     Dates: start: 20051228, end: 20060123
  4. PREDNISONE TAB [Concomitant]

REACTIONS (23)
  - ACUTE RESPIRATORY DISTRESS SYNDROME [None]
  - ASTHENIA [None]
  - BLOOD PRESSURE SYSTOLIC DECREASED [None]
  - CARDIOMEGALY [None]
  - CHRONIC LYMPHOCYTIC LEUKAEMIA [None]
  - CONFUSIONAL STATE [None]
  - COUGH [None]
  - DIARRHOEA [None]
  - DISEASE PROGRESSION [None]
  - DYSPNOEA [None]
  - FAECAL INCONTINENCE [None]
  - HEPATOSPLENOMEGALY [None]
  - HYPOTENSION [None]
  - IMMUNOSUPPRESSION [None]
  - LUNG CONSOLIDATION [None]
  - LUNG NEOPLASM [None]
  - MALAISE [None]
  - MUCOSAL HAEMORRHAGE [None]
  - PULMONARY FIBROSIS [None]
  - RENAL FAILURE [None]
  - RESPIRATORY FAILURE [None]
  - SEPSIS SYNDROME [None]
  - VENTRICULAR HYPERTROPHY [None]
